FAERS Safety Report 11108886 (Version 1)
Quarter: 2015Q2

REPORT INFORMATION
  Report Type: Spontaneous
  Country: None (occurrence: None)
  Receive Date: 20150511
  Receipt Date: 20150511
  Transmission Date: 20150821
  Serious: Yes (Other)
  Sender: FDA-Public Use
  Company Number: None

PATIENT
  Age: 36 Year
  Sex: Female
  Weight: 80.74 kg

DRUGS (4)
  1. NAPROXEN. [Suspect]
     Active Substance: NAPROXEN
     Indication: PAIN
     Dosage: 1 PILL
     Route: 048
     Dates: start: 20150504, end: 20150507
  2. NAPROXEN. [Suspect]
     Active Substance: NAPROXEN
     Indication: LIMB INJURY
     Dosage: 1 PILL
     Route: 048
     Dates: start: 20150504, end: 20150507
  3. PHENYTOIN. [Concomitant]
     Active Substance: PHENYTOIN
  4. CYCLOBENZAPRINE [Concomitant]
     Active Substance: CYCLOBENZAPRINE

REACTIONS (3)
  - Oedema peripheral [None]
  - Dysstasia [None]
  - Tinnitus [None]

NARRATIVE: CASE EVENT DATE: 20150504
